FAERS Safety Report 8830960 (Version 2)
Quarter: 2012Q4

REPORT INFORMATION
  Report Type: Report from Study
  Country: FR (occurrence: FR)
  Receive Date: 20121009
  Receipt Date: 20121026
  Transmission Date: 20130627
  Serious: Yes (Death, Life-Threatening, Hospitalization, Disabling)
  Sender: FDA-Public Use
  Company Number: FR-ASTELLAS-2012EU008828

PATIENT
  Age: 83 None
  Sex: Female
  Weight: 70 kg

DRUGS (2)
  1. SOLIFENACIN [Suspect]
     Indication: HYPERTONIC BLADDER
     Dosage: 5 mg, UID/QD
     Route: 048
  2. EXFORGE [Concomitant]
     Indication: HYPERTENSION
     Dosage: UNK
     Route: 048
     Dates: start: 2010, end: 20120511

REACTIONS (7)
  - Acute respiratory distress syndrome [Fatal]
  - Multi-organ failure [Fatal]
  - Nosocomial infection [Fatal]
  - Lung disorder [Fatal]
  - Fall [Fatal]
  - Femur fracture [Fatal]
  - Bronchitis [Fatal]
